FAERS Safety Report 7936795-X (Version None)
Quarter: 2011Q4

REPORT INFORMATION
  Report Type: 
  Country: None (occurrence: None)
  Receive Date: 20111123
  Receipt Date: 20111109
  Transmission Date: 20120403
  Serious: Yes (Hospitalization)
  Sender: FDA-Public Use
  Company Number: IT-ROCHE-1005240

PATIENT
  Age: 24 Year
  Sex: Male
  Weight: 98 kg

DRUGS (2)
  1. VEMURAFENIB [Suspect]
     Indication: METASTATIC MALIGNANT MELANOMA
     Dosage: INITIAL NUMBER OF TABLETS PER DAY: 8
     Dates: start: 20110719
  2. VEMURAFENIB [Suspect]
     Dates: start: 20110802

REACTIONS (3)
  - CHEST PAIN [None]
  - ABDOMINAL PAIN UPPER [None]
  - DYSPNOEA [None]
